FAERS Safety Report 6165012-9 (Version None)
Quarter: 2009Q2

REPORT INFORMATION
  Report Type: 
  Country: None (occurrence: None)
  Receive Date: 20090421
  Receipt Date: 20090421
  Transmission Date: 20091009
  Serious: No
  Sender: FDA-Public Use
  Company Number: None

PATIENT
  Age: 60 Year
  Sex: Male
  Weight: 79.3795 kg

DRUGS (4)
  1. LEVAQUIN [Suspect]
     Indication: ACUTE SINUSITIS
     Dosage: 1 DAILY PO
     Route: 048
     Dates: start: 20090224, end: 20090305
  2. LEVAQUIN [Concomitant]
  3. PSEUDOPHEDRINE [Concomitant]
  4. GUAFENICIN [Concomitant]

REACTIONS (4)
  - MOVEMENT DISORDER [None]
  - MUSCULOSKELETAL PAIN [None]
  - OEDEMA PERIPHERAL [None]
  - PAIN IN EXTREMITY [None]
